FAERS Safety Report 7264466-4 (Version None)
Quarter: 2011Q1

REPORT INFORMATION
  Report Type: 
  Country: None (occurrence: None)
  Receive Date: 20110131
  Receipt Date: 20110119
  Transmission Date: 20110831
  Serious: Yes (Hospitalization)
  Sender: FDA-Public Use
  Company Number: US-JNJFOC-20110105580

PATIENT
  Age: 55 Year
  Sex: Female
  Weight: 29.94 kg

DRUGS (8)
  1. NUCYNTA [Suspect]
     Indication: NEURALGIA
     Dosage: 4 TO 6 WEEKS
     Route: 065
  2. DILAUDID [Concomitant]
  3. DILAUDID [Concomitant]
  4. FLAGYL [Concomitant]
  5. DILAUDID [Concomitant]
     Indication: BREAKTHROUGH PAIN
  6. DILAUDID [Concomitant]
     Indication: PAIN
  7. CIPRO [Concomitant]
  8. ANTIDEPRESSANTS [Concomitant]
     Indication: NEURALGIA

REACTIONS (4)
  - ABDOMINAL PAIN [None]
  - BLOOD PRESSURE INCREASED [None]
  - VOMITING [None]
  - WEIGHT DECREASED [None]
